FAERS Safety Report 7904688-X (Version None)
Quarter: 2011Q4

REPORT INFORMATION
  Report Type: 
  Country: None (occurrence: None)
  Receive Date: 20111109
  Receipt Date: 20110921
  Transmission Date: 20120403
  Serious: Yes (Other)
  Sender: FDA-Public Use
  Company Number: JP-GLAXOSMITHKLINE-B0753848A

PATIENT
  Sex: Female

DRUGS (3)
  1. KYTRIL [Concomitant]
     Dosage: 3MG PER DAY
     Dates: start: 20110905, end: 20110909
  2. DECADRON [Concomitant]
     Route: 042
     Dates: start: 20110905, end: 20110909
  3. HYCAMTIN [Suspect]
     Indication: OVARIAN CANCER
     Dosage: 1.5MGM2 PER DAY
     Route: 042
     Dates: start: 20110905, end: 20110909

REACTIONS (2)
  - WHITE BLOOD CELL COUNT DECREASED [None]
  - THROMBOCYTOSIS [None]
